FAERS Safety Report 5100496-6 (Version None)
Quarter: 2006Q3

REPORT INFORMATION
  Report Type: 
  Country: None (occurrence: None)
  Receive Date: 20060907
  Receipt Date: 20060907
  Transmission Date: 20061208
  Serious: Yes (Life-Threatening, Hospitalization)
  Sender: FDA-Public Use
  Company Number: None

PATIENT
  Sex: Female
  Weight: 71.2147 kg

DRUGS (2)
  1. ORTHO EVRA [Suspect]
     Dosage: 1 PATCH WEEKLY CUTANEOUS
     Route: 003
     Dates: start: 20050901, end: 20060201
  2. ORAL CONTRACEPTIVE -WYETH [Suspect]
     Dosage: 1 PILL DAILY ORAL
     Route: 048
     Dates: start: 20060201, end: 20060701

REACTIONS (4)
  - CHEST PAIN [None]
  - DEEP VEIN THROMBOSIS [None]
  - DYSPNOEA [None]
  - MUSCULOSKELETAL PAIN [None]
